FAERS Safety Report 10389736 (Version 1)
Quarter: 2014Q3

REPORT INFORMATION
  Report Type: Spontaneous
  Country: CN (occurrence: CN)
  Receive Date: 20140818
  Receipt Date: 20140818
  Transmission Date: 20150326
  Serious: No
  Sender: FDA-Public Use
  Company Number: CN-JNJFOC-20140805088

PATIENT
  Age: 29 Year
  Sex: Female

DRUGS (1)
  1. DURAGESIC [Suspect]
     Active Substance: FENTANYL
     Indication: GASTRIC CANCER
     Route: 062
     Dates: start: 20131211, end: 20131211

REACTIONS (3)
  - Incorrect drug administration duration [Unknown]
  - Dizziness [Unknown]
  - Off label use [Unknown]

NARRATIVE: CASE EVENT DATE: 20131211
